FAERS Safety Report 10162110 (Version 1)
Quarter: 2014Q2

REPORT INFORMATION
  Report Type: Spontaneous
  Country: CA (occurrence: None)
  Receive Date: 20140508
  Receipt Date: 20140508
  Transmission Date: 20141212
  Serious: Yes (Hospitalization)
  Sender: FDA-Public Use
  Company Number: None

PATIENT
  Age: 62 Year
  Sex: Male
  Weight: 84.7 kg

DRUGS (1)
  1. CISPLATIN [Suspect]

REACTIONS (2)
  - Fatigue [None]
  - Aphagia [None]
